FAERS Safety Report 21792263 (Version 1)
Quarter: 2022Q4

REPORT INFORMATION
  Report Type: Report from Study
  Country: US (occurrence: US)
  Receive Date: 20221229
  Receipt Date: 20221229
  Transmission Date: 20230113
  Serious: No
  Sender: FDA-Public Use
  Company Number: US-ABBVIE-4206572

PATIENT
  Sex: Female
  Weight: 79 kg

DRUGS (2)
  1. RINVOQ [Suspect]
     Active Substance: UPADACITINIB
     Indication: Dermatitis atopic
     Route: 048
     Dates: start: 202208
  2. TRIAMCINOLONE ACETONIC [Concomitant]
     Indication: Product used for unknown indication

REACTIONS (1)
  - Dermatitis atopic [Not Recovered/Not Resolved]
